FAERS Safety Report 6769825-1 (Version None)
Quarter: 2010Q2

REPORT INFORMATION
  Report Type: 
  Country: None (occurrence: None)
  Receive Date: 20100520
  Receipt Date: 20091109
  Transmission Date: 20101027
  Serious: Yes (Other)
  Sender: FDA-Public Use
  Company Number: 2009295959

PATIENT
  Age: 59 Year
  Sex: Female
  Weight: 75 kg

DRUGS (3)
  1. PROVERA [Suspect]
     Indication: HORMONE REPLACEMENT THERAPY
     Dosage: 10 MG, ORAL
     Route: 048
     Dates: start: 19971103, end: 19990304
  2. PREMARIN [Suspect]
     Indication: HORMONE REPLACEMENT THERAPY
     Dosage: 0.9 MG, ORAL
     Route: 048
     Dates: start: 19970421, end: 19990407
  3. PREMPRO [Suspect]
     Indication: HORMONE REPLACEMENT THERAPY
     Dosage: , ORAL
     Route: 048
     Dates: start: 19990528, end: 20020514

REACTIONS (1)
  - BREAST CANCER FEMALE [None]
